FAERS Safety Report 18648989 (Version 1)
Quarter: 2020Q4

REPORT INFORMATION
  Report Type: Spontaneous
  Country: DE (occurrence: DE)
  Receive Date: 20201222
  Receipt Date: 20201222
  Transmission Date: 20210114
  Serious: Yes (Other)
  Sender: FDA-Public Use
  Company Number: DE-MYLANLABS-2020M1103310

PATIENT
  Age: 25 Year
  Sex: Male

DRUGS (9)
  1. SODIUM BICARBONATE. [Concomitant]
     Active Substance: SODIUM BICARBONATE
     Indication: URINE ALKALINISATION THERAPY
     Dosage: (60 MVAL)
  2. METHOTREXATE. [Suspect]
     Active Substance: METHOTREXATE
     Indication: PREOPERATIVE CARE
     Dosage: 20 G (WAS INFUSED VIA A CENTRAL VENOUS LINE OVER A PERIOD OF 4 H)
  3. METHOTREXATE. [Suspect]
     Active Substance: METHOTREXATE
     Indication: OSTEOSARCOMA
     Dosage: 20 G (ABSOLUTE DOSE)
  4. GLUCOSE [Concomitant]
     Active Substance: DEXTROSE
     Indication: PREOPERATIVE CARE
     Dosage: 1000 ML (5%)
     Route: 042
  5. METHOTREXATE. [Suspect]
     Active Substance: METHOTREXATE
     Dosage: 7.5 G (AFTER 1 H)
  6. METHOTREXATE. [Suspect]
     Active Substance: METHOTREXATE
     Dosage: 20 G (SECOND COURSE)
  7. POTASSIUM CHLORIDE. [Concomitant]
     Active Substance: POTASSIUM CHLORIDE
     Indication: PREOPERATIVE CARE
     Dosage: 40 (MVAL)
     Route: 042
  8. NORMAL SALINE [Concomitant]
     Active Substance: SODIUM CHLORIDE
     Indication: PREOPERATIVE CARE
     Dosage: 1000 ML
     Route: 042
  9. LEUCOVORIN                         /00566701/ [Concomitant]
     Active Substance: LEUCOVORIN
     Dosage: 480 MG (DISTRIBUTED OVER 3 DAYS)

REACTIONS (2)
  - Anaphylactoid reaction [Unknown]
  - Off label use [Unknown]
